FAERS Safety Report 9092565 (Version 1)
Quarter: 2013Q1

REPORT INFORMATION
  Report Type: Spontaneous
  Country: US (occurrence: US)
  Receive Date: 20130131
  Receipt Date: 20130131
  Transmission Date: 20140127
  Serious: No
  Sender: FDA-Public Use
  Company Number: US-BAYER-2013-011035

PATIENT
  Age: 24 Year
  Sex: Female

DRUGS (1)
  1. BEYAZ [Suspect]
     Indication: CONTRACEPTION
     Dosage: 3MG/0.02MG/0.451MG AND 0.451
     Route: 048
     Dates: start: 2011

REACTIONS (1)
  - Drug dose omission [None]
